FAERS Safety Report 9449832 (Version 2)
Quarter: 2013Q3

REPORT INFORMATION
  Report Type: Report from Study
  Country: CA (occurrence: CA)
  Receive Date: 20130809
  Receipt Date: 20130812
  Transmission Date: 20140515
  Serious: Yes (Death)
  Sender: FDA-Public Use
  Company Number: PHHY2013CA085532

PATIENT
  Age: 91 Year
  Sex: Female

DRUGS (1)
  1. CLOZARIL [Suspect]
     Indication: MAJOR DEPRESSION
     Dosage: 25 MG, UNK
     Route: 048
     Dates: start: 20090120

REACTIONS (1)
  - Death [Fatal]
